FAERS Safety Report 6763915-5 (Version None)
Quarter: 2010Q2

REPORT INFORMATION
  Report Type: 
  Country: None (occurrence: None)
  Receive Date: 20100610
  Receipt Date: 20100601
  Transmission Date: 20101027
  Serious: Yes (Other)
  Sender: FDA-Public Use
  Company Number: US-PFIZER INC-2010068699

PATIENT
  Sex: Female

DRUGS (1)
  1. LIPITOR [Suspect]
     Dosage: 20 MG, UNK
     Dates: start: 19940101

REACTIONS (3)
  - ANAEMIA [None]
  - HAEMATOCHEZIA [None]
  - RENAL FAILURE [None]
